FAERS Safety Report 6717655-9 (Version None)
Quarter: 2010Q2

REPORT INFORMATION
  Report Type: 
  Country: None (occurrence: None)
  Receive Date: 20100510
  Receipt Date: 20100429
  Transmission Date: 20101027
  Serious: Yes (Other)
  Sender: FDA-Public Use
  Company Number: GB-PFIZER INC-2008009081

PATIENT
  Age: 62 Year
  Sex: Male

DRUGS (7)
  1. CHAMPIX [Suspect]
     Dosage: 500 UG, UNK
     Route: 048
     Dates: start: 20071012, end: 20080101
  2. CHAMPIX [Suspect]
     Dosage: 1 MG, 2X/DAY
  3. ACETAMINOPHEN AND CODEINE PHOSPHATE [Concomitant]
     Dosage: UNK
     Route: 048
     Dates: start: 19940701
  4. WARFARIN SODIUM [Concomitant]
     Dosage: 5 MG, UNK
     Route: 048
     Dates: start: 19940701
  5. AMITRIPTYLINE [Concomitant]
     Indication: POOR QUALITY SLEEP
     Dosage: UNK
  6. AMITRIPTYLINE [Concomitant]
     Indication: STRESS
  7. DIAZEPAM [Concomitant]
     Dosage: UNK

REACTIONS (5)
  - ANXIETY [None]
  - CRYING [None]
  - DEPRESSIVE SYMPTOM [None]
  - STRESS [None]
  - SUICIDAL IDEATION [None]
